FAERS Safety Report 8883218 (Version 1)
Quarter: 2012Q4

REPORT INFORMATION
  Report Type: 
  Country: JP (occurrence: JP)
  Receive Date: 20121102
  Receipt Date: 20121102
  Transmission Date: 20130627
  Serious: Yes (Other)
  Sender: FDA-Public Use
  Company Number: PHHY2012JP099060

PATIENT
  Sex: Male

DRUGS (1)
  1. RASILEZ [Suspect]
     Route: 048

REACTIONS (1)
  - Urinary retention [Unknown]
